FAERS Safety Report 21120617 (Version 9)
Quarter: 2022Q4

REPORT INFORMATION
  Report Type: Report from Study
  Country: CO (occurrence: CO)
  Receive Date: 20220722
  Receipt Date: 20221224
  Transmission Date: 20230112
  Serious: Yes (Death, Hospitalization)
  Sender: FDA-Public Use
  Company Number: CO-NOVARTISPH-NVSC2022CO166301

PATIENT
  Age: 66 Year
  Sex: Female

DRUGS (1)
  1. ELTROMBOPAG OLAMINE [Suspect]
     Active Substance: ELTROMBOPAG OLAMINE
     Indication: Aplastic anaemia
     Dosage: 150 MG, QD
     Route: 048

REACTIONS (12)
  - Death [Fatal]
  - Platelet count decreased [Unknown]
  - Myelodysplastic syndrome [Unknown]
  - Discomfort [Unknown]
  - General physical health deterioration [Unknown]
  - Nosocomial infection [Unknown]
  - Vomiting [Unknown]
  - Diarrhoea [Unknown]
  - Haemorrhoids [Unknown]
  - Disease complication [Unknown]
  - Bacterial infection [Unknown]
  - Pyrexia [Unknown]

NARRATIVE: CASE EVENT DATE: 20221113
